FAERS Safety Report 9416963 (Version 2)
Quarter: 2013Q3

REPORT INFORMATION
  Report Type: Spontaneous
  Country: CA (occurrence: CA)
  Receive Date: 20130724
  Receipt Date: 20130830
  Transmission Date: 20140515
  Serious: Yes (Other)
  Sender: FDA-Public Use
  Company Number: CA-ABBOTT-13X-028-1122999-00

PATIENT
  Age: 62 Year
  Sex: 0

DRUGS (9)
  1. BIAXIN XL [Suspect]
     Indication: PNEUMONIA
     Route: 048
     Dates: start: 20130123, end: 20130124
  2. ASA [Concomitant]
     Indication: PRODUCT USED FOR UNKNOWN INDICATION
  3. ATIVAN [Concomitant]
     Indication: PRODUCT USED FOR UNKNOWN INDICATION
     Dosage: 1 - 2 MG
  4. EPIVAL [Concomitant]
     Indication: PRODUCT USED FOR UNKNOWN INDICATION
     Route: 048
  5. HYDERM [Concomitant]
     Indication: PRODUCT USED FOR UNKNOWN INDICATION
     Route: 061
  6. LIDEX [Concomitant]
     Indication: PRODUCT USED FOR UNKNOWN INDICATION
     Route: 061
  7. RIVOTRIL [Concomitant]
     Indication: PRODUCT USED FOR UNKNOWN INDICATION
     Dosage: 0.5MG AT BEDTIME
  8. TRAZODONE [Concomitant]
     Indication: PRODUCT USED FOR UNKNOWN INDICATION
     Dosage: 75 MG AT BEDTIME
  9. TYLENOL [Concomitant]
     Indication: PRODUCT USED FOR UNKNOWN INDICATION

REACTIONS (3)
  - Atrial fibrillation [Recovering/Resolving]
  - Sinus tachycardia [Recovering/Resolving]
  - Heart rate increased [Recovering/Resolving]
